FAERS Safety Report 5087006-7 (Version None)
Quarter: 2006Q3

REPORT INFORMATION
  Report Type: 
  Country: None (occurrence: None)
  Receive Date: 20060821
  Receipt Date: 20060809
  Transmission Date: 20061208
  Serious: Yes (Death, Hospitalization)
  Sender: FDA-Public Use
  Company Number: 2006098718

PATIENT
  Sex: Male

DRUGS (4)
  1. LYRICA [Suspect]
     Indication: NEURALGIA
     Dosage: 150 MG (75 MG, 2 IN 1 D), ORAL
     Route: 048
     Dates: start: 20060701, end: 20060730
  2. NEURONTIN [Suspect]
     Indication: NEURALGIA
     Dates: start: 20060101, end: 20060101
  3. PRIMPERAN TAB [Concomitant]
  4. ALL OTHER THERAPEUTIC PRODUCTS (ALL  OTHER THERAPEUTIC PRODUCTS) [Concomitant]

REACTIONS (1)
  - MOTION SICKNESS [None]
